FAERS Safety Report 15486048 (Version 2)
Quarter: 2018Q4

REPORT INFORMATION
  Report Type: Report from Study
  Country: US (occurrence: US)
  Receive Date: 20181011
  Receipt Date: 20181227
  Transmission Date: 20190205
  Serious: Yes (Other)
  Sender: FDA-Public Use
  Company Number: PHEH2018US042767

PATIENT
  Sex: Female

DRUGS (1)
  1. TRAVATAN Z [Suspect]
     Active Substance: TRAVOPROST
     Indication: GLAUCOMA
     Dosage: 1 GTT, QHS, OU (BOTH EYES)
     Route: 047

REACTIONS (3)
  - Intraocular pressure increased [Unknown]
  - Eye haemorrhage [Unknown]
  - Drug ineffective [Unknown]
